FAERS Safety Report 10061439 (Version 1)
Quarter: 2014Q2

REPORT INFORMATION
  Report Type: Spontaneous
  Country: US (occurrence: US)
  Receive Date: 20140407
  Receipt Date: 20140407
  Transmission Date: 20141212
  Serious: Yes (Hospitalization, Other)
  Sender: FDA-Public Use
  Company Number: US-JNJFOC-20140317298

PATIENT
  Sex: Male
  Weight: 99.79 kg

DRUGS (6)
  1. RISPERDAL [Suspect]
     Indication: PRODUCT USED FOR UNKNOWN INDICATION
     Route: 048
     Dates: end: 2011
  2. STRATTERA [Suspect]
     Indication: ATTENTION DEFICIT/HYPERACTIVITY DISORDER
     Route: 065
     Dates: end: 2011
  3. DEPAKOTE [Suspect]
     Indication: PRODUCT USED FOR UNKNOWN INDICATION
     Route: 065
     Dates: end: 2011
  4. CLONAZEPAM [Concomitant]
     Route: 065
  5. SEROQUEL [Concomitant]
     Route: 065
  6. LORCET [Concomitant]
     Indication: PAIN
     Route: 065

REACTIONS (7)
  - Tachyphrenia [Unknown]
  - Testicular disorder [Not Recovered/Not Resolved]
  - Mental retardation [Not Recovered/Not Resolved]
  - Erectile dysfunction [Not Recovered/Not Resolved]
  - Reading disorder [Not Recovered/Not Resolved]
  - Dysgraphia [Not Recovered/Not Resolved]
  - Infertility [Not Recovered/Not Resolved]
